FAERS Safety Report 16913520 (Version 1)
Quarter: 2019Q4

REPORT INFORMATION
  Report Type: Report from Study
  Country: BR (occurrence: BR)
  Receive Date: 20191014
  Receipt Date: 20191014
  Transmission Date: 20200122
  Serious: Yes (Hospitalization)
  Sender: FDA-Public Use
  Company Number: BR-UCBSA-2019042455

PATIENT
  Sex: Male
  Weight: 80 kg

DRUGS (1)
  1. LEVETIRACETAM. [Suspect]
     Active Substance: LEVETIRACETAM
     Indication: SEIZURE
     Dosage: STRENGTH: 100MG
     Dates: start: 201908

REACTIONS (1)
  - Post procedural infection [Unknown]

NARRATIVE: CASE EVENT DATE: 2019
